FAERS Safety Report 7562033-6 (Version None)
Quarter: 2011Q2

REPORT INFORMATION
  Report Type: 
  Country: None (occurrence: None)
  Receive Date: 20110622
  Receipt Date: 20080523
  Transmission Date: 20111010
  Serious: Yes (Other)
  Sender: FDA-Public Use
  Company Number: PHHY2008DE37531

PATIENT
  Sex: Male
  Weight: 79 kg

DRUGS (13)
  1. LEVOTHYROXINE SODIUM [Concomitant]
     Dosage: 75 DF, ONCE/SINGLE
  2. AMLODIPINE [Concomitant]
     Dosage: 5 MG, UNK
  3. ASPIRIN [Concomitant]
     Dosage: 100 MG, UNK
  4. TRAMADOL HYDROCHLORIDE [Concomitant]
     Dosage: UNK
  5. BROMOCRIPTINE MESYLATE [Concomitant]
     Dosage: 2.5 MG, 3X1/2 TABLETS
  6. MICARDIS [Concomitant]
     Dosage: 80 MG, UNK
  7. BROMOCRIPTINE MESYLATE [Concomitant]
     Dosage: 2.5 MG, ONCE/SINGLE
  8. TESTOSTERONE [Concomitant]
     Dosage: 50 MG, ONCE/SINGLE
  9. DICLAC [Concomitant]
     Dosage: UNK
  10. SOMAVERT [Concomitant]
     Dosage: UNK
  11. LEVOTHYROXINE SODIUM [Concomitant]
     Dosage: 150 DF, ONCE/SINGLE
  12. SANDOSTATIN LAR [Suspect]
     Indication: ACROMEGALY
     Dosage: 30 MG, UNK
     Route: 030
     Dates: start: 20070301
  13. KATADOLON [Concomitant]
     Dosage: UNK

REACTIONS (15)
  - RESPIRATORY RATE DECREASED [None]
  - ALOPECIA [None]
  - FATIGUE [None]
  - CARDIAC DISORDER [None]
  - GLAUCOMA [None]
  - INSULIN-LIKE GROWTH FACTOR INCREASED [None]
  - BLOOD GROWTH HORMONE ABNORMAL [None]
  - DRUG INEFFECTIVE [None]
  - DIABETES MELLITUS [None]
  - HYPERTENSION [None]
  - DIZZINESS [None]
  - SLEEP DISORDER [None]
  - HEADACHE [None]
  - AMNESIA [None]
  - BLOOD GLUCOSE DECREASED [None]
